FAERS Safety Report 25849655 (Version 3)
Quarter: 2025Q4

REPORT INFORMATION
  Report Type: Spontaneous
  Country: US (occurrence: US)
  Receive Date: 20250926
  Receipt Date: 20251129
  Transmission Date: 20260117
  Serious: No
  Sender: SUNOVION
  Company Number: US-SMPA-2025SPA012025

PATIENT
  Age: 70 Year
  Sex: Male

DRUGS (6)
  1. ORGOVYX [Suspect]
     Active Substance: RELUGOLIX
     Indication: Prostate cancer
     Dosage: 120 MG, QD
     Route: 048
     Dates: start: 20250911
  2. BICALUTAMIDE [Suspect]
     Active Substance: BICALUTAMIDE
     Indication: Product used for unknown indication
     Dosage: UNK
  3. CIALIS [Concomitant]
     Active Substance: TADALAFIL
     Dosage: UNK
  4. VITAMINS [Concomitant]
     Active Substance: VITAMINS
     Dosage: UNK
  5. TIMOLOL MALEATE [Concomitant]
     Active Substance: TIMOLOL MALEATE
     Dosage: UNK
  6. TRAVOPROST [Concomitant]
     Active Substance: TRAVOPROST
     Dosage: UNK

REACTIONS (5)
  - Night sweats [Unknown]
  - Hot flush [Unknown]
  - Feeling hot [Recovering/Resolving]
  - Weight increased [Unknown]
  - Incorrect dose administered [Recovered/Resolved]
